FAERS Safety Report 22950319 (Version 3)
Quarter: 2023Q4

REPORT INFORMATION
  Report Type: Spontaneous
  Country: CA (occurrence: CA)
  Receive Date: 20230915
  Receipt Date: 20231113
  Transmission Date: 20240110
  Serious: Yes (Hospitalization, Other)
  Sender: FDA-Public Use
  Company Number: CA-PFIZER INC-202300289096

PATIENT
  Age: 57 Year
  Sex: Female
  Weight: 75 kg

DRUGS (5)
  1. RUXIENCE [Suspect]
     Active Substance: RITUXIMAB-PVVR
     Indication: Rheumatoid arthritis
     Dosage: 1000 MG, DAY 1 AND DAY 15
     Route: 042
     Dates: start: 20230829
  2. ARTHROTEC [Concomitant]
     Active Substance: DICLOFENAC SODIUM\MISOPROSTOL
     Dosage: 2 DF (2 TABLETS)
     Dates: start: 202304
  3. ARTHROTEC [Concomitant]
     Active Substance: DICLOFENAC SODIUM\MISOPROSTOL
     Dosage: 1 DF,DOSAGE INFO: UNKNOWN 2 TABLETS
     Route: 065
     Dates: start: 202304
  4. IBUPROFEN [Concomitant]
     Active Substance: IBUPROFEN
     Dosage: 600 MG, AS NEEDED (PRN)
     Route: 065
  5. PERCOCET [Concomitant]
     Active Substance: ACETAMINOPHEN\OXYCODONE HYDROCHLORIDE
     Indication: Arthralgia
     Dosage: 1 DF, 2-3 A DAY
     Route: 065

REACTIONS (7)
  - Hypersensitivity [Unknown]
  - Infection [Unknown]
  - Disorientation [Recovered/Resolved]
  - Vomiting [Recovered/Resolved]
  - Abdominal pain upper [Recovered/Resolved]
  - Headache [Recovered/Resolved]
  - Throat irritation [Recovering/Resolving]

NARRATIVE: CASE EVENT DATE: 20230101
